FAERS Safety Report 5831852-6 (Version None)
Quarter: 2008Q3

REPORT INFORMATION
  Report Type: 
  Country: None (occurrence: None)
  Receive Date: 20080804
  Receipt Date: 20080730
  Transmission Date: 20090109
  Serious: Yes (Death)
  Sender: FDA-Public Use
  Company Number: DE-BRISTOL-MYERS SQUIBB COMPANY-14282131

PATIENT
  Age: 7 Decade
  Sex: Male

DRUGS (4)
  1. ABILIFY [Suspect]
     Indication: MANIA
     Dosage: 0N 07-JUL-2008 RECEIVED 2 VIALS (EACH 9.75MG)IM
     Route: 030
     Dates: start: 20080723
  2. LORAZEPAM [Suspect]
     Indication: MANIA
     Dosage: STARTED AS 2.5 MILLIGRAM ORALLY, LATER CHANGED TO 4 MG INTRAVENOUS.
     Dates: start: 20080723
  3. ZYPREXA [Suspect]
     Indication: MANIA
     Dosage: ORODISPERSIBLE TABLET
     Route: 048
     Dates: start: 20080723
  4. HALDOL [Suspect]
     Indication: MANIA
     Route: 042
     Dates: start: 20080723

REACTIONS (2)
  - PULMONARY EMBOLISM [None]
  - SHOCK [None]
